FAERS Safety Report 19677951 (Version 1)
Quarter: 2021Q3

REPORT INFORMATION
  Report Type: Spontaneous
  Country: US (occurrence: US)
  Receive Date: 20210810
  Receipt Date: 20210810
  Transmission Date: 20211014
  Serious: No
  Sender: FDA-Public Use
  Company Number: US-ALVOGEN-2021-ALVOGEN-116554

PATIENT
  Age: 31 Year
  Sex: Female

DRUGS (1)
  1. GABAPENTINE [Suspect]
     Active Substance: GABAPENTIN
     Indication: INTERVERTEBRAL DISC DISORDER
     Dosage: STRENGTH: 600 MG DAILY BY MOUTH
     Route: 048

REACTIONS (2)
  - Drug ineffective [Unknown]
  - Feeling abnormal [Unknown]

NARRATIVE: CASE EVENT DATE: 20190809
